FAERS Safety Report 14206075 (Version 1)
Quarter: 2017Q4

REPORT INFORMATION
  Report Type: Report from Study
  Country: US (occurrence: US)
  Receive Date: 20171120
  Receipt Date: 20171120
  Transmission Date: 20180321
  Serious: Yes (Death, Hospitalization)
  Sender: FDA-Public Use
  Company Number: US-BAYER-2017-157771

PATIENT
  Age: 53 Year
  Sex: Male

DRUGS (2)
  1. STIVARGA [Suspect]
     Active Substance: REGORAFENIB
     Indication: CARCINOID TUMOUR
     Dosage: 120 MG, QD
     Route: 048
     Dates: start: 20170802, end: 201708
  2. STIVARGA [Suspect]
     Active Substance: REGORAFENIB
     Indication: CARCINOID TUMOUR
     Dosage: 120 MG, QD
     Route: 048
     Dates: start: 2017, end: 201711

REACTIONS (4)
  - Pneumonia [Fatal]
  - Off label use [None]
  - Product use in unapproved indication [None]
  - Palmar-plantar erythrodysaesthesia syndrome [None]

NARRATIVE: CASE EVENT DATE: 201708
